FAERS Safety Report 19003403 (Version 1)
Quarter: 2021Q1

REPORT INFORMATION
  Report Type: Spontaneous
  Country: DE (occurrence: DE)
  Receive Date: 20210312
  Receipt Date: 20210312
  Transmission Date: 20210420
  Serious: Yes (Hospitalization)
  Sender: FDA-Public Use
  Company Number: DE-TEVA-2021-DE-1887361

PATIENT
  Age: 15 Year
  Sex: Female
  Weight: 50 kg

DRUGS (4)
  1. OPIPRAMOL [Suspect]
     Active Substance: OPIPRAMOL
     Indication: DEPRESSION
     Dosage: 112.5 MILLIGRAM DAILY; DAILY DOSE: 112.5 MG MILLGRAM(S) EVERY DAYS
     Route: 048
     Dates: start: 201808, end: 20190605
  2. ARIPIPRAZOL [Suspect]
     Active Substance: ARIPIPRAZOLE
     Indication: SUICIDE ATTEMPT
     Dosage: 5 MILLIGRAM DAILY; DAILY DOSE: 5 MG MILLGRAM(S) EVERY TOTAL
     Route: 048
     Dates: start: 20190605, end: 20190605
  3. ARIPIPRAZOL [Suspect]
     Active Substance: ARIPIPRAZOLE
     Indication: PSYCHOTIC DISORDER
     Dosage: 2.5 MILLIGRAM DAILY; DAILY DOSE: 2.5 MG MILLGRAM(S) EVERY DAYS
     Route: 048
     Dates: start: 201808, end: 20190605
  4. OPIPRAMOL [Suspect]
     Active Substance: OPIPRAMOL
     Indication: SUICIDE ATTEMPT
     Dosage: 450 MILLIGRAM DAILY; DAILY DOSE: 450 MG MILLGRAM(S) EVERY TOTAL
     Route: 048
     Dates: start: 20190605, end: 20190605

REACTIONS (2)
  - Suicide attempt [Recovered/Resolved]
  - Intentional overdose [Recovered/Resolved]

NARRATIVE: CASE EVENT DATE: 20190605
